FAERS Safety Report 5258365-7 (Version None)
Quarter: 2007Q1

REPORT INFORMATION
  Report Type: 
  Country: None (occurrence: None)
  Receive Date: 20070308
  Receipt Date: 20070223
  Transmission Date: 20070707
  Serious: Yes (Hospitalization, Other)
  Sender: FDA-Public Use
  Company Number: PHEH2005US08927

PATIENT
  Age: 44 Year
  Sex: Male
  Weight: 88.888 kg

DRUGS (18)
  1. ZOFRAN [Concomitant]
     Route: 042
     Dates: start: 20030101
  2. ZOFRAN [Concomitant]
     Route: 042
     Dates: start: 20030201
  3. PERCOCET [Concomitant]
  4. VINCRISTINE [Concomitant]
     Indication: MULTIPLE MYELOMA
  5. DOXIL [Concomitant]
     Indication: MULTIPLE MYELOMA
  6. THALIDOMIDE [Concomitant]
     Indication: MULTIPLE MYELOMA
  7. DECADRON [Concomitant]
     Indication: MULTIPLE MYELOMA
  8. INSULIN [Concomitant]
  9. ASPIRIN [Concomitant]
     Dosage: 20 MG, BID
  10. ACYCLOVIR [Concomitant]
  11. SENOKOT [Concomitant]
  12. VICODIN [Concomitant]
  13. NEPHROCAPS [Concomitant]
  14. CYTOXAN [Concomitant]
     Dates: start: 20030101
  15. LOVENOX [Concomitant]
  16. AREDIA [Suspect]
     Indication: HYPERCALCAEMIA
     Dosage: 30MG QMO
     Route: 042
     Dates: start: 20020805, end: 20031001
  17. AREDIA [Suspect]
     Dosage: 100MG QMON
     Route: 042
     Dates: end: 20031001
  18. AREDIA [Suspect]
     Dosage: 60 MG, ONCE/SINGLE
     Dates: start: 20030206

REACTIONS (50)
  - ANAEMIA [None]
  - ANXIETY [None]
  - ARTHRALGIA [None]
  - ARTHRITIS BACTERIAL [None]
  - ARTHROSCOPIC SURGERY [None]
  - ASTHENIA [None]
  - BLOOD BICARBONATE DECREASED [None]
  - BLOOD CALCIUM DECREASED [None]
  - BLOOD CREATININE INCREASED [None]
  - BLOOD PHOSPHORUS INCREASED [None]
  - BONE PAIN [None]
  - CELLULITIS [None]
  - CEREBRAL ATROPHY [None]
  - CERVICAL SPINAL STENOSIS [None]
  - CHEST PAIN [None]
  - CONVULSION [None]
  - DEPRESSION [None]
  - DIZZINESS [None]
  - FEBRILE NEUTROPENIA [None]
  - FLUID OVERLOAD [None]
  - GOUT [None]
  - HAEMODIALYSIS [None]
  - JOINT SWELLING [None]
  - LEUKAEMIA PLASMACYTIC [None]
  - LUNG INFILTRATION [None]
  - MALIGNANT NEOPLASM PROGRESSION [None]
  - MUCOSAL INFLAMMATION [None]
  - MYELOMA RECURRENCE [None]
  - NECK PAIN [None]
  - OESOPHAGITIS [None]
  - OSTEOLYSIS [None]
  - OSTEOMYELITIS [None]
  - OSTEONECROSIS [None]
  - OSTEOPENIA [None]
  - PACKED RED BLOOD CELL TRANSFUSION [None]
  - PERIPHERAL BLOOD STEM CELL APHERESIS [None]
  - PLASMAPHERESIS [None]
  - PLATELET TRANSFUSION [None]
  - PYREXIA [None]
  - RADIOTHERAPY [None]
  - RASH [None]
  - RENAL FAILURE [None]
  - SINUSITIS [None]
  - SPINAL OSTEOARTHRITIS [None]
  - STAPHYLOCOCCAL INFECTION [None]
  - SUICIDAL IDEATION [None]
  - THROMBOCYTOPENIA [None]
  - THROMBOSIS [None]
  - VISUAL DISTURBANCE [None]
  - VISUAL FIELD DEFECT [None]
